FAERS Safety Report 7582277-7 (Version None)
Quarter: 2011Q2

REPORT INFORMATION
  Report Type: 
  Country: None (occurrence: None)
  Receive Date: 20110527
  Receipt Date: 20110221
  Transmission Date: 20111010
  Serious: Yes (Other)
  Sender: FDA-Public Use
  Company Number: US201101004819

PATIENT
  Age: 68 Year
  Sex: Male
  Weight: 90.7 kg

DRUGS (9)
  1. PRANDIN (DEFLAZACORT) [Concomitant]
  2. LOPRESSOR [Concomitant]
  3. BYETTA [Suspect]
     Dosage: 5 UG, 2/D, SUBCUTANEOUS, 10 UG, 2/D, SUBCUTANEOUS
     Route: 058
     Dates: start: 20090202, end: 20101223
  4. BYETTA [Suspect]
     Dosage: 5 UG, 2/D, SUBCUTANEOUS, 10 UG, 2/D, SUBCUTANEOUS
     Route: 058
     Dates: start: 20080317, end: 20090202
  5. LIPITOR [Concomitant]
  6. ALTACE [Concomitant]
  7. ASPIRIN [Concomitant]
  8. JANUVIA [Concomitant]
  9. METFORMIN HCL [Concomitant]

REACTIONS (1)
  - PANCREATITIS [None]
